FAERS Safety Report 17619617 (Version 4)
Quarter: 2021Q1

REPORT INFORMATION
  Report Type: Spontaneous
  Country: IT (occurrence: IT)
  Receive Date: 20200403
  Receipt Date: 20210223
  Transmission Date: 20210419
  Serious: Yes (Hospitalization, Other)
  Sender: FDA-Public Use
  Company Number: IT-ALEXION PHARMACEUTICALS INC-A201918011

PATIENT
  Age: 35 Year
  Sex: Male
  Weight: 63 kg

DRUGS (5)
  1. SOLIRIS [Suspect]
     Active Substance: ECULIZUMAB
     Indication: HAEMOLYTIC URAEMIC SYNDROME
     Dosage: 900 MG, SINGLE
     Route: 042
     Dates: start: 20191110, end: 20191110
  2. SOLIRIS [Suspect]
     Active Substance: ECULIZUMAB
     Indication: OFF LABEL USE
  3. SOLIRIS [Suspect]
     Active Substance: ECULIZUMAB
     Indication: GENERALISED TONIC-CLONIC SEIZURE
     Dosage: 900 MG, SINGLE
     Route: 042
     Dates: start: 20191111, end: 20191111
  4. CLARITHROMYCIN. [Concomitant]
     Active Substance: CLARITHROMYCIN
     Indication: ANTIBIOTIC PROPHYLAXIS
     Dosage: 250 MG, UNK
     Route: 042
  5. SOLIRIS [Suspect]
     Active Substance: ECULIZUMAB
     Indication: MULTIPLE ORGAN DYSFUNCTION SYNDROME

REACTIONS (6)
  - Coma [Recovered/Resolved]
  - Respiratory failure [Recovered/Resolved]
  - Pneumonia klebsiella [Recovered/Resolved]
  - Peroneal nerve palsy [Unknown]
  - Off label use [Recovered/Resolved with Sequelae]
  - Serratia infection [Recovered/Resolved]

NARRATIVE: CASE EVENT DATE: 20191110
